FAERS Safety Report 21073915 (Version 2)
Quarter: 2022Q4

REPORT INFORMATION
  Report Type: Spontaneous
  Country: US (occurrence: US)
  Receive Date: 20220713
  Receipt Date: 20221012
  Transmission Date: 20230113
  Serious: Yes (Other)
  Sender: FDA-Public Use
  Company Number: US-JNJFOC-20220718042

PATIENT
  Age: 58 Year
  Sex: Female

DRUGS (3)
  1. ELMIRON [Suspect]
     Active Substance: PENTOSAN POLYSULFATE SODIUM
     Indication: Cystitis interstitial
     Dosage: PPS 100 MG 10+ YEARS
     Route: 048
  2. ELMIRON [Suspect]
     Active Substance: PENTOSAN POLYSULFATE SODIUM
     Route: 048
     Dates: start: 2013
  3. ELMIRON [Suspect]
     Active Substance: PENTOSAN POLYSULFATE SODIUM
     Route: 048
     Dates: start: 2021

REACTIONS (2)
  - Retinal pigmentation [Unknown]
  - Off label use [Unknown]

NARRATIVE: CASE EVENT DATE: 20200201
